FAERS Safety Report 9747865 (Version 1)
Quarter: 2013Q4

REPORT INFORMATION
  Report Type: Spontaneous
  Country: DE (occurrence: None)
  Receive Date: 20131206
  Receipt Date: 20131206
  Transmission Date: 20140711
  Serious: Yes (Life-Threatening, Hospitalization, Congenital Anomaly, Other)
  Sender: FDA-Public Use
  Company Number: FK201305205

PATIENT
  Age: 1 Day
  Sex: Male
  Weight: 2.8 kg

DRUGS (6)
  1. EPIRUBICIN [Suspect]
     Dosage: 156 MG, TWICE DURING PREGNANCY, TRANSPLACENTAL
     Dates: start: 20120914, end: 20121005
  2. CYCLOPHOSPHAMIDE [Suspect]
     Dosage: 1040 MG, TWICE DURING PREGNANCY, TRANSPLACENTAL
     Dates: start: 20120914, end: 20121005
  3. FOLSAURE RATIOPHARM(FOLIC ACID) [Concomitant]
  4. FILGRASTIM(FILGRASTIM) [Concomitant]
  5. DEXAMETHASONE [Concomitant]
  6. ONDANSETRON [Suspect]

REACTIONS (4)
  - Pulmonary artery stenosis congenital [None]
  - Atrial septal defect [None]
  - Neonatal respiratory distress syndrome [None]
  - Maternal drugs affecting foetus [None]
